FAERS Safety Report 7282499-9 (Version None)
Quarter: 2011Q1

REPORT INFORMATION
  Report Type: 
  Country: None (occurrence: None)
  Receive Date: 20110209
  Receipt Date: 20110202
  Transmission Date: 20110831
  Serious: Yes (Death, Other)
  Sender: FDA-Public Use
  Company Number: US-CELGENEUS-163-21880-10022026

PATIENT
  Sex: Male

DRUGS (13)
  1. REVLIMID [Suspect]
     Route: 048
     Dates: start: 20090901
  2. VELCADE [Concomitant]
     Route: 065
     Dates: start: 20100101, end: 20100101
  3. ACYCLOVIR [Concomitant]
     Route: 065
  4. MELPHALAN [Concomitant]
     Indication: LEUKAEMIA PLASMACYTIC
     Route: 065
     Dates: start: 20100401, end: 20100401
  5. DIGOXIN [Concomitant]
     Indication: ARRHYTHMIA
     Route: 065
  6. XANAX [Concomitant]
     Indication: SLEEP DISORDER
     Route: 065
  7. REVLIMID [Suspect]
     Indication: MULTIPLE MYELOMA
     Route: 048
     Dates: start: 20100201
  8. BACTRIM [Concomitant]
     Route: 065
  9. COUMADIN [Concomitant]
     Indication: ATRIAL FIBRILLATION
     Route: 065
  10. MELPHALAN [Concomitant]
     Dosage: 32-36 MG
     Route: 065
     Dates: start: 20100402, end: 20100402
  11. IMODIUM [Concomitant]
     Indication: DIARRHOEA
     Route: 065
  12. LYRICA [Concomitant]
     Route: 065
  13. COUMADIN [Concomitant]
     Route: 065

REACTIONS (9)
  - WHITE BLOOD CELL COUNT DECREASED [None]
  - EPISTAXIS [None]
  - DEATH [None]
  - CONSTIPATION [None]
  - PLATELET COUNT DECREASED [None]
  - NEUROPATHY PERIPHERAL [None]
  - DISEASE PROGRESSION [None]
  - ANAEMIA [None]
  - FATIGUE [None]
